FAERS Safety Report 8407407-6 (Version None)
Quarter: 2012Q2

REPORT INFORMATION
  Report Type: 
  Country: None (occurrence: None)
  Receive Date: 20120529
  Receipt Date: 20120515
  Transmission Date: 20120825
  Serious: Yes (Hospitalization, Other)
  Sender: FDA-Public Use
  Company Number: 2012MA005577

PATIENT
  Age: 27 Year
  Sex: Female
  Weight: 70 kg

DRUGS (1)
  1. CHLORPROMAZINE HYDROCHLORIDE [Suspect]
     Dosage: 400 MG;X1;PO
     Route: 048

REACTIONS (13)
  - ALTERED STATE OF CONSCIOUSNESS [None]
  - RENAL FAILURE ACUTE [None]
  - TACHYCARDIA [None]
  - INCORRECT DOSE ADMINISTERED [None]
  - RESPIRATORY RATE INCREASED [None]
  - NEUROLEPTIC MALIGNANT SYNDROME [None]
  - ATELECTASIS [None]
  - RHABDOMYOLYSIS [None]
  - AUTONOMIC NERVOUS SYSTEM IMBALANCE [None]
  - PNEUMONIA [None]
  - SALIVARY HYPERSECRETION [None]
  - PUPIL FIXED [None]
  - JOINT ANKYLOSIS [None]
